FAERS Safety Report 12859732 (Version 1)
Quarter: 2016Q4

REPORT INFORMATION
  Report Type: Report from Study
  Country: US (occurrence: US)
  Receive Date: 20161018
  Receipt Date: 20161018
  Transmission Date: 20170207
  Serious: Yes (Hospitalization, Other)
  Sender: FDA-Public Use
  Company Number: US-BAXALTA-2016BLT004924AA

PATIENT
  Age: 62 Year
  Sex: Female
  Weight: 80.73 kg

DRUGS (13)
  1. HYQVIA [Suspect]
     Active Substance: HUMAN IMMUNOGLOBULIN G\HYALURONIDASE RECOMBINANT HUMAN
     Indication: IMMUNODEFICIENCY COMMON VARIABLE
     Dosage: 200 ML, EVERY 2 WK
     Route: 065
  2. GLIMEPIRIDE. [Concomitant]
     Active Substance: GLIMEPIRIDE
     Indication: PRODUCT USED FOR UNKNOWN INDICATION
     Dosage: 4 MG, 2X A DAY
  3. HUMALOG [Concomitant]
     Active Substance: INSULIN LISPRO
     Indication: DIABETES MELLITUS
  4. AVANDIA [Concomitant]
     Active Substance: ROSIGLITAZONE MALEATE
     Indication: PRODUCT USED FOR UNKNOWN INDICATION
     Dosage: 4 MG, 1X A DAY
  5. PLAVIX [Concomitant]
     Active Substance: CLOPIDOGREL BISULFATE
     Indication: CARDIAC DISORDER
  6. HYQVIA [Suspect]
     Active Substance: HUMAN IMMUNOGLOBULIN G\HYALURONIDASE RECOMBINANT HUMAN
     Dosage: UNK, EVERY 2 WK
     Route: 065
     Dates: start: 20160704
  7. HYQVIA [Suspect]
     Active Substance: HUMAN IMMUNOGLOBULIN G\HYALURONIDASE RECOMBINANT HUMAN
     Dosage: 20 G, UNK
     Route: 058
     Dates: start: 20160926
  8. NOVOLOG [Concomitant]
     Active Substance: INSULIN ASPART
     Indication: DIABETES MELLITUS
  9. HYQVIA [Suspect]
     Active Substance: HUMAN IMMUNOGLOBULIN G\HYALURONIDASE RECOMBINANT HUMAN
     Dosage: 20 G, EVERY 2 WK
     Route: 058
     Dates: start: 201504
  10. LANTUS [Concomitant]
     Active Substance: INSULIN GLARGINE
     Indication: DIABETES MELLITUS
     Dosage: 30 UNITS
  11. HIZENTRA [Concomitant]
     Active Substance: HUMAN IMMUNOGLOBULIN G
     Indication: PRIMARY IMMUNODEFICIENCY SYNDROME
     Route: 042
  12. ATORVASTATIN [Concomitant]
     Active Substance: ATORVASTATIN
     Indication: PRODUCT USED FOR UNKNOWN INDICATION
  13. HYQVIA [Suspect]
     Active Substance: HUMAN IMMUNOGLOBULIN G\HYALURONIDASE RECOMBINANT HUMAN
     Indication: PRIMARY IMMUNODEFICIENCY SYNDROME
     Dosage: UNK UNK, 1X A MONTH
     Route: 065
     Dates: start: 201508

REACTIONS (27)
  - Abdominal distension [Recovered/Resolved]
  - Dehydration [Unknown]
  - Acquired claw toe [Unknown]
  - Infusion site induration [Unknown]
  - Discomfort [Unknown]
  - Musculoskeletal stiffness [Unknown]
  - Inappropriate schedule of drug administration [Recovered/Resolved]
  - Cystitis [Recovering/Resolving]
  - Facial paralysis [Unknown]
  - Dysphagia [Unknown]
  - Infusion site rash [Unknown]
  - Vomiting [Unknown]
  - Urinary tract infection [Recovered/Resolved]
  - Night sweats [Unknown]
  - Nausea [Recovered/Resolved]
  - Glycosylated haemoglobin increased [Unknown]
  - Back injury [Unknown]
  - Local swelling [Unknown]
  - Infusion site warmth [Recovered/Resolved]
  - Urine output increased [Unknown]
  - Infusion site bruising [Recovered/Resolved]
  - Soft tissue injury [Unknown]
  - Blood glucose increased [Recovered/Resolved]
  - Muscle spasms [Unknown]
  - Infusion site erythema [Not Recovered/Not Resolved]
  - Pyrexia [Recovered/Resolved]
  - Urticaria [Recovered/Resolved]

NARRATIVE: CASE EVENT DATE: 20160926
